FAERS Safety Report 9025162 (Version 1)
Quarter: 2013Q1

REPORT INFORMATION
  Report Type: Spontaneous
  Country: SE (occurrence: SE)
  Receive Date: 20130122
  Receipt Date: 20130122
  Transmission Date: 20140127
  Serious: Yes (Hospitalization)
  Sender: FDA-Public Use
  Company Number: SE-009507513-1301SWE007335

PATIENT
  Age: 63 Year
  Sex: Female

DRUGS (7)
  1. MIRTAZAPINE [Suspect]
     Indication: PSYCHOTIC DISORDER
     Dosage: UNK
     Route: 048
     Dates: start: 20120915
  2. ZYPREXA [Suspect]
     Indication: PSYCHOTIC DISORDER
     Dosage: UNK
     Route: 048
     Dates: end: 20120915
  3. KALCIPOS D [Concomitant]
  4. LAMOTRIGINE [Concomitant]
  5. NITRAZEPAM [Concomitant]
  6. RESULAX [Concomitant]
  7. LACTULOSE [Concomitant]

REACTIONS (3)
  - Dyskinesia [Recovered/Resolved]
  - Musculoskeletal stiffness [Recovered/Resolved]
  - Drug interaction [Unknown]
